FAERS Safety Report 14253794 (Version 1)
Quarter: 2017Q4

REPORT INFORMATION
  Report Type: Spontaneous
  Country: DE (occurrence: DE)
  Receive Date: 20171205
  Receipt Date: 20171205
  Transmission Date: 20180321
  Serious: Yes (Other)
  Sender: FDA-Public Use
  Company Number: DE-ALEXION PHARMACEUTICALS INC.-A201713575

PATIENT
  Age: 30 Year
  Sex: Female

DRUGS (2)
  1. SOLIRIS [Suspect]
     Active Substance: ECULIZUMAB
     Dosage: 900 MG, QW
     Route: 065
     Dates: start: 201612
  2. SOLIRIS [Suspect]
     Active Substance: ECULIZUMAB
     Indication: PAROXYSMAL NOCTURNAL HAEMOGLOBINURIA
     Dosage: UNK
     Route: 065

REACTIONS (4)
  - Cholecystitis acute [Recovered/Resolved]
  - Thrombocytopenia [Unknown]
  - Haemolysis [Recovering/Resolving]
  - Budd-Chiari syndrome [Unknown]

NARRATIVE: CASE EVENT DATE: 201701
